FAERS Safety Report 9311308 (Version 3)
Quarter: 2013Q4

REPORT INFORMATION
  Report Type: Spontaneous
  Country: US (occurrence: US)
  Receive Date: 20130528
  Receipt Date: 20131022
  Transmission Date: 20140711
  Serious: Yes (Hospitalization, Other)
  Sender: FDA-Public Use
  Company Number: US-ASTELLAS-2013US005381

PATIENT
  Age: 71 Year
  Sex: Male

DRUGS (1)
  1. PROGRAF [Suspect]
     Indication: HEART TRANSPLANT
     Dosage: 2 MG, BID
     Route: 048
     Dates: start: 20090702

REACTIONS (3)
  - Dementia Alzheimer^s type [Unknown]
  - Spinal osteoarthritis [Not Recovered/Not Resolved]
  - Liposarcoma [Not Recovered/Not Resolved]
